FAERS Safety Report 8001349-6 (Version None)
Quarter: 2011Q4

REPORT INFORMATION
  Report Type: 
  Country: None (occurrence: None)
  Receive Date: 20111219
  Receipt Date: 20111214
  Transmission Date: 20120403
  Serious: Yes (Hospitalization, Other)
  Sender: FDA-Public Use
  Company Number: ADR-2010-9172

PATIENT
  Sex: Male

DRUGS (1)
  1. LIORESAL [Suspect]
     Indication: MUSCLE SPASTICITY
     Dosage: 414 MCG, DAILY, INTRATH

REACTIONS (6)
  - IMPLANT SITE HAEMATOMA [None]
  - IMPLANT SITE SWELLING [None]
  - IMPLANT SITE CELLULITIS [None]
  - DEVICE MALFUNCTION [None]
  - WOUND COMPLICATION [None]
  - DRUG EFFECT DECREASED [None]
